FAERS Safety Report 15121320 (Version 3)
Quarter: 2018Q3

REPORT INFORMATION
  Report Type: Report from Study
  Country: NZ (occurrence: NZ)
  Receive Date: 20180709
  Receipt Date: 20180813
  Transmission Date: 20181010
  Serious: Yes (Hospitalization, Other)
  Sender: FDA-Public Use
  Company Number: NZ-MYLANLABS-2018M1049673

PATIENT
  Age: 59 Year
  Sex: Male

DRUGS (1)
  1. CLOZARIL [Suspect]
     Active Substance: CLOZAPINE
     Indication: SCHIZOPHRENIA
     Dosage: UNK
     Route: 048
     Dates: start: 20150707

REACTIONS (9)
  - Tachycardia [Unknown]
  - Road traffic accident [Unknown]
  - Head injury [Unknown]
  - Agitation [Unknown]
  - Loss of consciousness [Unknown]
  - Subarachnoid haemorrhage [Unknown]
  - Musculoskeletal pain [Unknown]
  - Subdural haemorrhage [Unknown]
  - Piriformis syndrome [Unknown]

NARRATIVE: CASE EVENT DATE: 2018
